FAERS Safety Report 13100202 (Version 4)
Quarter: 2024Q1

REPORT INFORMATION
  Report Type: Report from Study
  Country: US (occurrence: US)
  Receive Date: 20170110
  Receipt Date: 20240221
  Transmission Date: 20240410
  Serious: Yes (Other)
  Sender: FDA-Public Use
  Company Number: US-AEGERION PHARMACEUTICAL INC-AEGR002875

PATIENT
  Age: 68 Year
  Sex: Female
  Weight: 87.982 kg

DRUGS (16)
  1. JUXTAPID [Suspect]
     Active Substance: LOMITAPIDE MESYLATE
     Indication: Type IIa hyperlipidaemia
     Dosage: 5 MG, QD
     Route: 048
     Dates: start: 20140626, end: 20161121
  2. ASPIRIN [Concomitant]
     Active Substance: ASPIRIN
     Indication: Coronary artery disease
     Dosage: 81 MG, QD
     Route: 048
     Dates: start: 20130828
  3. CLOPIDOGREL [Concomitant]
     Active Substance: CLOPIDOGREL BISULFATE
     Indication: Coronary artery disease
     Dosage: 75 MG, QD
     Route: 048
     Dates: start: 2007
  4. COD LIVER OIL [Concomitant]
     Active Substance: COD LIVER OIL
     Indication: Supplementation therapy
     Dosage: 1 CAPSULE, QD
     Route: 048
     Dates: start: 20110902
  5. FUROSEMIDE [Concomitant]
     Active Substance: FUROSEMIDE
     Indication: Hypertension
     Dosage: 20 MG, PRN
     Route: 048
     Dates: start: 20141208
  6. LISINOPRIL [Concomitant]
     Active Substance: LISINOPRIL
     Indication: Hypertension
     Dosage: 10 MG, QD
     Route: 048
     Dates: start: 20160520
  7. LYRICA [Concomitant]
     Active Substance: PREGABALIN
     Indication: Osteoarthritis
     Dosage: 50 MG, TID
     Route: 048
     Dates: start: 20080715
  8. MAGNESIUM [Concomitant]
     Active Substance: MAGNESIUM
     Indication: Supplementation therapy
     Dosage: 250 MG, QD
     Route: 048
     Dates: start: 20110902
  9. MELOXICAM [Concomitant]
     Active Substance: MELOXICAM
     Indication: Osteoarthritis
     Dosage: 7.5-15 MG, PRN
     Route: 048
     Dates: start: 20121010
  10. METOPROLOL TARTRATE [Concomitant]
     Active Substance: METOPROLOL TARTRATE
     Indication: Coronary artery disease
     Dosage: 50 MG, QD
     Route: 048
     Dates: start: 20120918
  11. NITROGLYCERIN [Concomitant]
     Active Substance: NITROGLYCERIN
     Indication: Coronary artery disease
     Dosage: 0.4 MG, PRN
     Route: 060
     Dates: start: 20110208
  12. Odorless garlic [Concomitant]
     Indication: Supplementation therapy
     Dosage: 1000 MG, QD
     Route: 048
     Dates: start: 20081112
  13. RANITIDINE [Concomitant]
     Active Substance: RANITIDINE
     Indication: Gastrooesophageal reflux disease
     Dosage: 75 MG, QD
     Route: 048
     Dates: start: 20120813
  14. TRAMADOL [Concomitant]
     Active Substance: TRAMADOL\TRAMADOL HYDROCHLORIDE
     Indication: Osteoarthritis
     Dosage: 25 MG, PRN
     Route: 048
     Dates: start: 2014
  15. VITAMIN D3 [Concomitant]
     Active Substance: CHOLECALCIFEROL
     Indication: Supplementation therapy
     Dosage: 5000 UNITS, QD
     Route: 048
     Dates: start: 20120116
  16. VITAMIN E [Concomitant]
     Active Substance: .ALPHA.-TOCOPHEROL
     Indication: Supplementation therapy
     Dosage: 400 UNITS, QD
     Route: 048
     Dates: start: 20140626

REACTIONS (4)
  - Haematochezia [Recovered/Resolved]
  - Rectal spasm [Recovered/Resolved]
  - Nausea [Recovered/Resolved]
  - Subcutaneous abscess [Unknown]

NARRATIVE: CASE EVENT DATE: 20161101
